FAERS Safety Report 23654632 (Version 13)
Quarter: 2025Q4

REPORT INFORMATION
  Report Type: Report from Study
  Country: US (occurrence: US)
  Receive Date: 20240320
  Receipt Date: 20251126
  Transmission Date: 20260117
  Serious: Yes (Hospitalization)
  Sender: JAZZ
  Company Number: USA-GW00300-2024-GWEP19022 - CANNABIDIOL IN LGS AND DS000003

PATIENT
  Age: 36 Year
  Sex: Male
  Weight: 42 kg

DRUGS (44)
  1. EPIDIOLEX [Suspect]
     Active Substance: CANNABIDIOL
     Indication: Epilepsy
     Dosage: UNK
  2. EPIDIOLEX [Suspect]
     Active Substance: CANNABIDIOL
     Dosage: 2 MILLIGRAM, TID
     Dates: start: 2019
  3. EPIDIOLEX [Suspect]
     Active Substance: CANNABIDIOL
     Dosage: 2 MILLILITER, TID
     Dates: start: 20190615
  4. EPIDIOLEX [Suspect]
     Active Substance: CANNABIDIOL
     Dosage: 14 MILLIGRAM/KILOGRAM, DAILY
  5. EPIDIOLEX [Suspect]
     Active Substance: CANNABIDIOL
     Dosage: 13.5 MILLIGRAM/KILOGRAM, QD
     Dates: start: 20240206
  6. EPIDIOLEX [Suspect]
     Active Substance: CANNABIDIOL
     Dosage: 13 MILLIGRAM/KILOGRAM, DAILY
  7. EPIDIOLEX [Suspect]
     Active Substance: CANNABIDIOL
     Dosage: 1.5 MILLILITER, BID
     Dates: start: 20240221
  8. EPIDIOLEX [Suspect]
     Active Substance: CANNABIDIOL
     Dosage: 2 MILLILITER, QD
     Dates: start: 20240221
  9. EPIDIOLEX [Suspect]
     Active Substance: CANNABIDIOL
     Dosage: 2 MILLILITER, QD
     Dates: start: 20240403
  10. EPIDIOLEX [Suspect]
     Active Substance: CANNABIDIOL
     Dosage: 12.3 MILLIGRAM/KILOGRAM, DAILY
  11. EPIDIOLEX [Suspect]
     Active Substance: CANNABIDIOL
     Dosage: UNK
  12. DEPAKOTE ER [Concomitant]
     Active Substance: DIVALPROEX SODIUM
     Indication: Epilepsy
     Dosage: 250 MILLIGRAM, BID
     Dates: start: 20080615
  13. DEPAKOTE ER [Concomitant]
     Active Substance: DIVALPROEX SODIUM
     Dosage: 500 MILLIGRAM, DAILY
  14. DEPAKOTE ER [Concomitant]
     Active Substance: DIVALPROEX SODIUM
     Dosage: 500 MILLIGRAM, BID
     Dates: start: 20240208
  15. DEPAKOTE ER [Concomitant]
     Active Substance: DIVALPROEX SODIUM
     Dosage: 250 MILLIGRAM, BID
     Dates: start: 20240208
  16. DEPAKOTE ER [Concomitant]
     Active Substance: DIVALPROEX SODIUM
     Dosage: 250 MILLIGRAM, BID
     Dates: start: 2008, end: 20240207
  17. DIAZEPAM [Concomitant]
     Active Substance: DIAZEPAM
     Indication: Epilepsy
     Dosage: 20 MILLIGRAM
  18. DILANTIN [Concomitant]
     Active Substance: PHENYTOIN
     Indication: Epilepsy
     Dosage: 100 MILLIGRAM, BID
     Dates: start: 20080615, end: 20241130
  19. DILANTIN [Concomitant]
     Active Substance: PHENYTOIN
     Dosage: 30 MILLIGRAM, DIALY
  20. DILANTIN [Concomitant]
     Active Substance: PHENYTOIN
     Dosage: 90 MILLIGRAM, DIALY
  21. DILANTIN [Concomitant]
     Active Substance: PHENYTOIN
     Dosage: 100 MILLIGRAM, BID
     Dates: start: 2008, end: 20240214
  22. LORAZEPAM [Concomitant]
     Active Substance: LORAZEPAM
     Indication: Epilepsy
     Dosage: 0.5 MILLIGRAM, QID
     Dates: start: 20080615
  23. LORAZEPAM [Concomitant]
     Active Substance: LORAZEPAM
     Dosage: 0.5 MILLIGRAM, BID
     Dates: start: 2008
  24. LORAZEPAM [Concomitant]
     Active Substance: LORAZEPAM
     Dosage: 1 MILLIGRAM, DIALY
  25. OMEPRAZOLE [Concomitant]
     Active Substance: OMEPRAZOLE
     Indication: Gastrooesophageal reflux disease
     Dosage: 40 MILLIGRAM, DAILY
  26. SENNOSIDES [Concomitant]
     Active Substance: SENNOSIDES
     Indication: Constipation
     Dosage: 17.2 MILLIGRAM, DAILY
  27. LEVOCARNITINE [Concomitant]
     Active Substance: LEVOCARNITINE
     Indication: Epilepsy
     Dosage: 330 MILLIGRAM, BID
     Dates: start: 20150615
  28. LEVOCARNITINE [Concomitant]
     Active Substance: LEVOCARNITINE
     Dosage: 330 MILLIGRAM, TID
     Dates: start: 20240208, end: 202404
  29. LEVOCARNITINE [Concomitant]
     Active Substance: LEVOCARNITINE
     Dosage: 330 MILLIGRAM, BID
     Dates: start: 2015, end: 20240207
  30. LACOSAMIDE [Concomitant]
     Active Substance: LACOSAMIDE
     Indication: Epilepsy
     Dosage: 100 MILLIGRAM, QD
     Dates: start: 20240221
  31. LACOSAMIDE [Concomitant]
     Active Substance: LACOSAMIDE
     Dosage: 100 MILLIGRAM, QD
     Dates: start: 20240222, end: 20240223
  32. LACOSAMIDE [Concomitant]
     Active Substance: LACOSAMIDE
     Dosage: 150 MILLIGRAM
     Dates: start: 20240224, end: 20240224
  33. LACOSAMIDE [Concomitant]
     Active Substance: LACOSAMIDE
     Dosage: 100 MILLIGRAM, BID
     Dates: start: 20240225, end: 20240318
  34. DIVALPROEX SODIUM [Concomitant]
     Active Substance: DIVALPROEX SODIUM
     Dosage: 500 MILLIGRAM, QAM
  35. PIPERACILLIN AND TAZOBACTAM [Concomitant]
     Active Substance: PIPERACILLIN SODIUM\TAZOBACTAM SODIUM
     Indication: Sepsis
     Dosage: 3.4 GRAM, EVERY 8 HOURS
     Dates: start: 20240326, end: 20240329
  36. DOXYCYCLINE [Concomitant]
     Active Substance: DOXYCYCLINE
     Indication: Sepsis
     Dosage: 100 MILLIGRAM, BID
     Dates: start: 20240331, end: 20240406
  37. FERROUS SULFATE [Concomitant]
     Active Substance: FERROUS SULFATE
     Indication: Metabolic encephalopathy
     Dosage: 300 MILLIGRAM
     Dates: start: 20240228, end: 20250306
  38. PYRIDOXINE [Concomitant]
     Active Substance: PYRIDOXINE
     Indication: Metabolic encephalopathy
     Dosage: 25 MILLIGRAM, DAILY
     Dates: start: 20240228, end: 20240306
  39. AMPHETAMINE SULFATE [Concomitant]
     Active Substance: AMPHETAMINE SULFATE
     Indication: Gastrostomy
     Dosage: UNK
     Dates: start: 20240229, end: 20240303
  40. REMDESIVIR [Concomitant]
     Active Substance: REMDESIVIR
     Indication: Metabolic encephalopathy
     Dosage: 200 MILLIGRAM, QD
     Dates: start: 20240301, end: 20240301
  41. AMPICILLIN AND SULBACTAM [Concomitant]
     Active Substance: AMPICILLIN SODIUM\SULBACTAM SODIUM
     Indication: Gastrostomy
     Dosage: 3 GRAM, QID
     Dates: start: 20240229, end: 20240303
  42. MIRTAZAPINE [Concomitant]
     Active Substance: MIRTAZAPINE
     Indication: Decreased appetite
     Dosage: 15 MILLIGRAM
     Dates: start: 20240227, end: 20240302
  43. VITAMIN D3 [Concomitant]
     Active Substance: CHOLECALCIFEROL
     Indication: Nutritional supplementation
     Dosage: 1000 INTERNATIONAL UNIT, DIALY
  44. THIAMINE [Concomitant]
     Active Substance: THIAMINE
     Indication: Nutritional supplementation
     Dosage: 100 MILLIGRAM

REACTIONS (7)
  - Metabolic encephalopathy [Recovered/Resolved]
  - Hypernatraemia [Recovered/Resolved]
  - Device malfunction [Recovered/Resolved]
  - Sepsis [Recovered/Resolved]
  - Hypophagia [Recovered/Resolved]
  - Lethargy [Recovered/Resolved]
  - SARS-CoV-2 test positive [Recovered/Resolved]

NARRATIVE: CASE EVENT DATE: 20240206
